FAERS Safety Report 11291614 (Version 1)
Quarter: 2015Q3

REPORT INFORMATION
  Report Type: Spontaneous
  Country: US (occurrence: US)
  Receive Date: 20150722
  Receipt Date: 20150722
  Transmission Date: 20151125
  Serious: Yes (Death, Other)
  Sender: FDA-Public Use
  Company Number: US-ASTRAZENECA-2008BM10096

PATIENT
  Age: 810 Month
  Sex: Male
  Weight: 260 kg

DRUGS (18)
  1. LOVAZA [Concomitant]
     Active Substance: OMEGA-3-ACID ETHYL ESTERS
     Dates: start: 20080121
  2. SPIRONOLACTONE. [Concomitant]
     Active Substance: SPIRONOLACTONE
     Dates: start: 20080414
  3. BYETTA [Suspect]
     Active Substance: EXENATIDE
     Dosage: 2.4 ML 10 MCG
     Route: 065
     Dates: start: 20090826
  4. BYETTA [Suspect]
     Active Substance: EXENATIDE
     Route: 065
     Dates: start: 20120804
  5. CRESTOR [Concomitant]
     Active Substance: ROSUVASTATIN CALCIUM
     Dates: start: 20080414
  6. BYETTA [Suspect]
     Active Substance: EXENATIDE
     Dosage: 2.4 ML 10 MCG
     Route: 065
     Dates: start: 20120411
  7. GLIMEPIRIDE. [Concomitant]
     Active Substance: GLIMEPIRIDE
     Dates: start: 20080113
  8. WARFARIN [Concomitant]
     Active Substance: WARFARIN
     Dates: start: 20080121
  9. BYETTA [Suspect]
     Active Substance: EXENATIDE
     Dosage: 1.2 ML 5MCG
     Route: 065
     Dates: start: 20080719
  10. CARVEDILOL. [Concomitant]
     Active Substance: CARVEDILOL
     Dates: start: 20080219
  11. METFORMIN HCL [Concomitant]
     Active Substance: METFORMIN HYDROCHLORIDE
     Dates: start: 20080414
  12. BYETTA [Suspect]
     Active Substance: EXENATIDE
     Route: 058
     Dates: start: 20080721
  13. PLAVIX [Concomitant]
     Active Substance: CLOPIDOGREL BISULFATE
     Dates: start: 20080414
  14. DIOVAN [Concomitant]
     Active Substance: VALSARTAN
     Dosage: 160/12.5 MG
     Dates: start: 20080414
  15. LANOXIN [Concomitant]
     Active Substance: DIGOXIN
     Dates: start: 20080501
  16. FOLIC ACID. [Concomitant]
     Active Substance: FOLIC ACID
     Dates: start: 20080121
  17. FUROSEMIDE. [Concomitant]
     Active Substance: FUROSEMIDE
     Dates: start: 20080414
  18. DOXYCYCLINE HYDROCHLORIDE [Concomitant]
     Active Substance: DOXYCYCLINE HYDROCHLORIDE
     Dates: start: 20100630

REACTIONS (5)
  - Adenocarcinoma of colon [Unknown]
  - Metastases to liver [Unknown]
  - Metastases to lung [Unknown]
  - Jaundice cholestatic [Unknown]
  - Pancreatic carcinoma metastatic [Fatal]

NARRATIVE: CASE EVENT DATE: 201207
